FAERS Safety Report 13469153 (Version 1)
Quarter: 2017Q2

REPORT INFORMATION
  Report Type: Spontaneous
  Country: CN (occurrence: CN)
  Receive Date: 20170421
  Receipt Date: 20170421
  Transmission Date: 20170830
  Serious: Yes (Other)
  Sender: FDA-Public Use
  Company Number: CN-JNJFOC-20170418366

PATIENT

DRUGS (1)
  1. RISPERIDONE. [Suspect]
     Active Substance: RISPERIDONE
     Indication: PSYCHOTIC DISORDER
     Route: 065

REACTIONS (10)
  - Heart rate abnormal [Unknown]
  - Adverse event [Unknown]
  - Neutrophil count decreased [Unknown]
  - White blood cell count decreased [Unknown]
  - Hypersensitivity [Unknown]
  - Liver function test abnormal [Unknown]
  - Electrocardiogram abnormal [Unknown]
  - Blood glucose increased [Unknown]
  - Extrapyramidal disorder [Unknown]
  - Lipids increased [Unknown]
